FAERS Safety Report 16214659 (Version 1)
Quarter: 2019Q2

REPORT INFORMATION
  Report Type: Spontaneous
  Country: AR (occurrence: AR)
  Receive Date: 20190418
  Receipt Date: 20190418
  Transmission Date: 20190711
  Serious: Yes (Life-Threatening, Hospitalization, Disabling, Other)
  Sender: FDA-Public Use
  Company Number: AR-009507513-1904ARG002227

PATIENT
  Age: 43 Year
  Sex: Male
  Weight: 70 kg

DRUGS (7)
  1. CISPLATIN (+) PEMETREXED DISODIUM [Concomitant]
     Indication: METASTASIS
  2. KEYTRUDA [Suspect]
     Active Substance: PEMBROLIZUMAB
     Indication: LUNG CARCINOMA CELL TYPE UNSPECIFIED STAGE IV
     Dosage: 200 MILLIGRAM, EVERY 21 DAYS
     Route: 042
     Dates: start: 20190225, end: 20190225
  3. KEYTRUDA [Suspect]
     Active Substance: PEMBROLIZUMAB
     Indication: NON-SMALL CELL LUNG CANCER
  4. CISPLATIN (+) PEMETREXED DISODIUM [Concomitant]
     Indication: LUNG CARCINOMA CELL TYPE UNSPECIFIED STAGE IV
     Dosage: UNK, CYCLICAL
     Dates: start: 20190114, end: 20190204
  5. NAPROXEN. [Concomitant]
     Active Substance: NAPROXEN
     Indication: HYPERTHERMIA MALIGNANT
     Dosage: 500 MILLIGRAMEVERY 12 HOURS
     Route: 048
     Dates: start: 201901
  6. CISPLATIN (+) PEMETREXED DISODIUM [Concomitant]
     Indication: METASTASES TO ADRENALS
  7. KEYTRUDA [Suspect]
     Active Substance: PEMBROLIZUMAB
     Indication: METASTASIS

REACTIONS (14)
  - Bronchostenosis [Recovered/Resolved]
  - Bronchiectasis [Unknown]
  - Pneumonia [Unknown]
  - Superior vena cava occlusion [Unknown]
  - Immune-mediated adverse reaction [Unknown]
  - Lymphadenopathy [Unknown]
  - Pulmonary embolism [Unknown]
  - Nephrolithiasis [Unknown]
  - Atrial thrombosis [Unknown]
  - Dysphonia [Recovering/Resolving]
  - Tracheomalacia [Unknown]
  - Malignant neoplasm progression [Unknown]
  - Cardiac myxoma [Unknown]
  - Emphysema [Unknown]

NARRATIVE: CASE EVENT DATE: 2019
